FAERS Safety Report 7248164-9 (Version None)
Quarter: 2011Q1

REPORT INFORMATION
  Report Type: 
  Country: None (occurrence: None)
  Receive Date: 20110127
  Receipt Date: 20101116
  Transmission Date: 20110831
  Serious: Yes (Hospitalization)
  Sender: FDA-Public Use
  Company Number: US-BAYER-201038476NA

PATIENT
  Sex: Female
  Weight: 72.562 kg

DRUGS (10)
  1. OCELLA [Suspect]
     Indication: ACNE
  2. TETRACYCLINE [Concomitant]
     Dosage: UNK
     Dates: start: 20070502
  3. YAZ [Suspect]
     Indication: ACNE
     Dosage: UNK
     Dates: start: 20050827, end: 20070701
  4. PROTONIX [Concomitant]
     Indication: MIGRAINE
     Dosage: UNK
     Dates: start: 20070523
  5. NAPROXEN [Concomitant]
     Dosage: UNK
     Dates: start: 20050101, end: 20070101
  6. METRONIDAZOLE [Concomitant]
     Dosage: UNK
     Dates: start: 20070502
  7. ALBUTEROL [Concomitant]
     Dosage: UNK
     Dates: start: 20060101
  8. HYDROCODONE BITARTRATE AND ACETAMINOPHEN [Concomitant]
     Dosage: UNK
     Dates: start: 20070723
  9. IMITREX [Concomitant]
     Indication: MIGRAINE
     Dosage: UNK
     Dates: start: 20040101, end: 20050101
  10. YASMIN [Suspect]
     Indication: ACNE

REACTIONS (10)
  - VOMITING [None]
  - ENDOMETRIOSIS [None]
  - CHOLECYSTITIS CHRONIC [None]
  - ABDOMINAL PAIN UPPER [None]
  - GALLBLADDER NON-FUNCTIONING [None]
  - POLYMENORRHOEA [None]
  - ABDOMINAL DISTENSION [None]
  - ABDOMINAL ADHESIONS [None]
  - OVARIAN CYST [None]
  - NAUSEA [None]
